FAERS Safety Report 15201963 (Version 1)
Quarter: 2018Q3

REPORT INFORMATION
  Report Type: Spontaneous
  Country: FI (occurrence: FI)
  Receive Date: 20180726
  Receipt Date: 20180726
  Transmission Date: 20181010
  Serious: Yes (Other)
  Sender: FDA-Public Use
  Company Number: FI-MYLANLABS-2018M1057358

PATIENT
  Age: 69 Year
  Sex: Male

DRUGS (20)
  1. RISPERIDONE. [Suspect]
     Active Substance: RISPERIDONE
     Dosage: 3 MG, PM
     Dates: start: 20180115
  2. RISPERIDONE. [Suspect]
     Active Substance: RISPERIDONE
     Dosage: 2 MG, PM
     Dates: start: 20180124
  3. RISPERIDONE. [Suspect]
     Active Substance: RISPERIDONE
     Dosage: 1 MG, UNK
     Dates: start: 20180127, end: 20180129
  4. ATIVAN [Suspect]
     Active Substance: LORAZEPAM
     Indication: HALLUCINATION
     Dosage: 2 MG, PRN
  5. SERENASE                           /00027401/ [Suspect]
     Active Substance: HALOPERIDOL
     Indication: HALLUCINATION
     Dosage: 5 MG, PRN
     Route: 065
  6. LEPONEX [Suspect]
     Active Substance: CLOZAPINE
     Indication: HALLUCINATION
     Dosage: UNK
  7. ZYPREXA [Suspect]
     Active Substance: OLANZAPINE
     Indication: PSYCHOTIC SYMPTOM
     Dosage: 15 MG, UNK
  8. RISPERIDONE. [Suspect]
     Active Substance: RISPERIDONE
     Indication: PSYCHOTIC SYMPTOM
     Dosage: 1 MG, PM
     Route: 065
     Dates: start: 20171231
  9. RISPERIDONE. [Suspect]
     Active Substance: RISPERIDONE
     Dosage: 4 MG, PM
     Dates: start: 20180114
  10. ATIVAN [Suspect]
     Active Substance: LORAZEPAM
     Dosage: 2 MG, PRN
  11. ATIVAN [Suspect]
     Active Substance: LORAZEPAM
     Dosage: 3 MG, PRN
     Route: 065
  12. DIAPAM                             /00017001/ [Suspect]
     Active Substance: DIAZEPAM
     Indication: PRODUCT USED FOR UNKNOWN INDICATION
     Dosage: 30 MG, QD
     Dates: start: 20180126
  13. ZYPREXA [Suspect]
     Active Substance: OLANZAPINE
     Dosage: 10 MG, UNK
  14. DIAPAM                             /00017001/ [Suspect]
     Active Substance: DIAZEPAM
     Dosage: 20 MG, UNK
     Dates: start: 20180129, end: 20180201
  15. SERENASE                           /00027401/ [Suspect]
     Active Substance: HALOPERIDOL
     Dosage: 5 MG, QD
     Dates: start: 20180129
  16. ZYPREXA [Suspect]
     Active Substance: OLANZAPINE
     Dosage: 7.5 MG, UNK
     Route: 065
     Dates: start: 20180131, end: 20180203
  17. RISPERIDONE. [Suspect]
     Active Substance: RISPERIDONE
     Dosage: 2 MG, PM
     Dates: start: 20180102
  18. ATIVAN [Suspect]
     Active Substance: LORAZEPAM
     Dosage: 4 MG, PRN
  19. ATIVAN [Suspect]
     Active Substance: LORAZEPAM
     Dosage: 2 MG, PRN
     Route: 065
  20. RISPERIDONE. [Suspect]
     Active Substance: RISPERIDONE
     Dosage: 3 MG, PM
     Dates: start: 20180107

REACTIONS (3)
  - Vascular dementia [Unknown]
  - Parkinsonism [Unknown]
  - Hallucination [Recovering/Resolving]

NARRATIVE: CASE EVENT DATE: 2018
